FAERS Safety Report 22775899 (Version 4)
Quarter: 2023Q4

REPORT INFORMATION
  Report Type: Report from Study
  Country: AR (occurrence: AR)
  Receive Date: 20230802
  Receipt Date: 20231025
  Transmission Date: 20240109
  Serious: Yes (Hospitalization, Other)
  Sender: FDA-Public Use
  Company Number: AR-002147023-NVSC2023AR167992

PATIENT
  Sex: Male

DRUGS (21)
  1. ENTRESTO [Suspect]
     Active Substance: SACUBITRIL\VALSARTAN
     Indication: Left ventricular failure
     Dosage: 1 DOSAGE FORM (200 MG OF 60 TABLETS FOR YEARS)
     Route: 065
  2. ENTRESTO [Suspect]
     Active Substance: SACUBITRIL\VALSARTAN
     Indication: Cardiac failure
     Dosage: 1 DOSAGE FORM, QD (200 MG)
     Route: 048
  3. ENTRESTO [Suspect]
     Active Substance: SACUBITRIL\VALSARTAN
     Dosage: 0.5 DOSAGE FORM (0.5 X 200 MG), BID (BREAKFAST / DINNER)
     Route: 065
  4. ENTRESTO [Suspect]
     Active Substance: SACUBITRIL\VALSARTAN
     Dosage: 0.5 DOSAGE FORM, QD (5 MG)
     Route: 065
  5. VICTOZA [Concomitant]
     Active Substance: LIRAGLUTIDE
     Indication: Diabetes mellitus
     Dosage: 1.2 MG, QD (BREAKFAST)
     Route: 065
  6. VICTOZA [Concomitant]
     Active Substance: LIRAGLUTIDE
     Indication: Cardiac failure
  7. ROSUVASTATIN [Concomitant]
     Active Substance: ROSUVASTATIN
     Indication: Cardiac failure
     Dosage: 20 MG, QD (1 IN THE DINNER)
     Route: 065
  8. ASPIRIN [Concomitant]
     Active Substance: ASPIRIN
     Indication: Cardiac failure
     Dosage: 100 MG, QD (BREAKFAST)
     Route: 065
  9. DAPAGLIFLOZIN [Concomitant]
     Active Substance: DAPAGLIFLOZIN
     Indication: Product used for unknown indication
     Dosage: 0.5 DOSAGE FORM, QD (BREAKFAST)
     Route: 065
  10. DAPAGLIFLOZIN [Concomitant]
     Active Substance: DAPAGLIFLOZIN
     Dosage: 200 MG, QD
     Route: 065
  11. DAPAGLIFLOZIN [Concomitant]
     Active Substance: DAPAGLIFLOZIN
     Indication: Product used for unknown indication
     Dosage: 0.5 DOSAGE FORM, QD (BREAKFAST)
     Route: 065
  12. OMEGA 3 [Concomitant]
     Active Substance: CAPSAICIN
     Indication: Product used for unknown indication
     Dosage: 1000 MG, QD
     Route: 065
  13. ALLOPURINOL [Concomitant]
     Active Substance: ALLOPURINOL
     Indication: Product used for unknown indication
     Dosage: 100 MG, QOD
     Route: 065
  14. LANTUS [Concomitant]
     Active Substance: INSULIN GLARGINE
     Indication: Diabetes mellitus
     Dosage: 1 DOSAGE FORM (20U)
     Route: 065
  15. CLONAZEPAM [Concomitant]
     Active Substance: CLONAZEPAM
     Indication: Product used for unknown indication
     Dosage: 1 MG, QD (IN THE DINNER)
     Route: 065
  16. FILTEN [Concomitant]
     Indication: Cardiac failure
     Dosage: 1 DOSAGE FORM, BID (BREAKFAST AND DINNER)
     Route: 065
  17. LASIX [Concomitant]
     Active Substance: FUROSEMIDE
     Indication: Cardiac failure
     Dosage: 40 MG, QD (BREAKFAST)
     Route: 065
  18. SUFICARD [Concomitant]
     Indication: Product used for unknown indication
     Dosage: 25 MG, QD (BREAKFAST)
     Route: 065
  19. BALIGLUC AP [Concomitant]
     Indication: Diabetes mellitus
     Dosage: 0.5 DOSAGE FORM, BID (BREAKFAST AND DINNER)
     Route: 065
  20. SINLIP [Concomitant]
     Indication: Product used for unknown indication
     Dosage: 20 MG, QD
     Route: 065
  21. SINLIP [Concomitant]
     Dosage: 10 MG, QD
     Route: 065

REACTIONS (8)
  - Cardiac failure [Recovering/Resolving]
  - Oedema peripheral [Recovering/Resolving]
  - Renal failure [Unknown]
  - Hypertension [Unknown]
  - Gait disturbance [Unknown]
  - Fatigue [Unknown]
  - Muscle atrophy [Unknown]
  - Wrong technique in product usage process [Unknown]
